FAERS Safety Report 8196982-5 (Version None)
Quarter: 2012Q1

REPORT INFORMATION
  Report Type: 
  Country: None (occurrence: None)
  Receive Date: 20120309
  Receipt Date: 20120307
  Transmission Date: 20120608
  Serious: Yes (Hospitalization)
  Sender: FDA-Public Use
  Company Number: GB-ASTRAZENECA-2011SE68331

PATIENT
  Age: 26720 Day
  Sex: Male

DRUGS (11)
  1. DIAZEPAM [Concomitant]
     Indication: ANXIETY
     Route: 048
  2. VANDETANIB [Suspect]
     Indication: THYROID CANCER
     Route: 048
     Dates: start: 20110722
  3. PLAVIX FC [Concomitant]
     Indication: THROMBOSIS PROPHYLAXIS
     Route: 048
  4. BISOPRILOL [Concomitant]
     Indication: HYPERTENSION
     Route: 048
  5. LACTULOSE [Concomitant]
     Indication: CONSTIPATION
  6. LEVOTHYROXINE SODIUM [Concomitant]
     Indication: THYROXINE THERAPY
     Route: 048
  7. DOTHIEPIN HYDROCHLORIDE [Concomitant]
     Indication: SLEEP DISORDER
     Route: 048
  8. DOTHIEPIN HYDROCHLORIDE [Concomitant]
     Indication: ANTIDEPRESSANT THERAPY
     Route: 048
  9. OMEPRAZOLE [Concomitant]
     Indication: GASTRITIS PROPHYLAXIS
     Route: 048
  10. SIMVASTATIN [Concomitant]
     Indication: BLOOD CHOLESTEROL INCREASED
     Route: 048
  11. MUCODYNE [Concomitant]
     Indication: PRODUCTIVE COUGH
     Route: 048
     Dates: start: 20110727

REACTIONS (1)
  - ABSCESS LIMB [None]
